FAERS Safety Report 9831534 (Version 4)
Quarter: 2014Q1

REPORT INFORMATION
  Report Type: Report from Study
  Country: FR (occurrence: FR)
  Receive Date: 20140121
  Receipt Date: 20140217
  Transmission Date: 20141002
  Serious: Yes (Hospitalization)
  Sender: FDA-Public Use
  Company Number: FR-BAYER-2013-018158

PATIENT
  Age: 62 Year
  Sex: Female
  Weight: 46 kg

DRUGS (3)
  1. REGORAFENIB [Suspect]
     Indication: COLORECTAL CANCER METASTATIC
     Dosage: 40 X 4 = 160 MG
     Route: 048
     Dates: start: 20130129, end: 20130208
  2. REGORAFENIB [Suspect]
     Indication: COLORECTAL CANCER METASTATIC
     Dosage: 40 X 4 = 160 MG
     Route: 048
     Dates: start: 20130129, end: 20130208
  3. REGORAFENIB [Suspect]
     Indication: COLORECTAL CANCER METASTATIC
     Dosage: 40 X 4 = 160 MG
     Route: 048
     Dates: start: 20130129, end: 20130208

REACTIONS (4)
  - Decreased appetite [Recovered/Resolved]
  - Asthenia [Recovered/Resolved]
  - Skin toxicity [Recovered/Resolved]
  - Mucosal inflammation [Recovered/Resolved]
